FAERS Safety Report 17589380 (Version 1)
Quarter: 2020Q1

REPORT INFORMATION
  Report Type: Spontaneous
  Country: US (occurrence: US)
  Receive Date: 20200327
  Receipt Date: 20200327
  Transmission Date: 20200409
  Serious: No
  Sender: FDA-Public Use
  Company Number: US-ALLERGAN-1937626US

PATIENT
  Age: 66 Year
  Sex: Female

DRUGS (1)
  1. LATISSE [Suspect]
     Active Substance: BIMATOPROST
     Indication: PRODUCT USED FOR UNKNOWN INDICATION
     Dosage: 3-4 TIMES A WEEK
     Route: 061

REACTIONS (2)
  - Inappropriate schedule of product administration [Unknown]
  - Drug ineffective [Unknown]
